FAERS Safety Report 10193513 (Version 1)
Quarter: 2014Q2

REPORT INFORMATION
  Report Type: Spontaneous
  Country: US (occurrence: US)
  Receive Date: 20140524
  Receipt Date: 20140524
  Transmission Date: 20141212
  Serious: No
  Sender: FDA-Public Use
  Company Number: US-SA-2013SA128872

PATIENT
  Age: 68 Year
  Sex: Male

DRUGS (2)
  1. LANTUS SOLOSTAR [Suspect]
     Indication: TYPE 2 DIABETES MELLITUS
     Dosage: DOSE:16 UNIT(S)
     Route: 051
     Dates: end: 20131209
  2. SOLOSTAR [Concomitant]
     Indication: TYPE 2 DIABETES MELLITUS

REACTIONS (6)
  - Abdominal distension [Recovered/Resolved]
  - Dyspnoea [Recovered/Resolved]
  - Abdominal pain [Unknown]
  - Dyspepsia [Unknown]
  - Mobility decreased [Unknown]
  - Abdominal pain [Unknown]
